FAERS Safety Report 4375563-5 (Version None)
Quarter: 2004Q2

REPORT INFORMATION
  Report Type: 
  Country: None (occurrence: None)
  Receive Date: 20040610
  Receipt Date: 20040517
  Transmission Date: 20050107
  Serious: Yes (Other)
  Sender: FDA-Public Use
  Company Number: PHBS2004BR06594

PATIENT
  Age: 44 Year
  Sex: Female

DRUGS (6)
  1. CLOZAPINE [Suspect]
     Indication: SCHIZOPHRENIA
     Dosage: 600 MG/D
     Route: 048
     Dates: start: 20040412, end: 20040528
  2. PURAN T4 [Concomitant]
     Dosage: 50 MG, QD
     Route: 048
  3. VITAMIN B-12 [Concomitant]
     Dosage: 1 DF, QMO
     Route: 048
  4. RISPERIDONE [Concomitant]
     Indication: SCHIZOPHRENIA
     Dosage: UNK, UNK
     Route: 048
     Dates: end: 20040515
  5. RISPERIDONE [Concomitant]
     Dosage: 4 MG/D
     Route: 048
     Dates: start: 20040531
  6. FOLIC ACID [Concomitant]
     Dosage: 1 DF, QD
     Route: 048

REACTIONS (6)
  - IMMUNOLOGY TEST ABNORMAL [None]
  - NEUTROPHIL COUNT INCREASED [None]
  - NEUTROPHIL PERCENTAGE INCREASED [None]
  - PLATELET COUNT INCREASED [None]
  - RED BLOOD CELL COUNT INCREASED [None]
  - WHITE BLOOD CELL COUNT INCREASED [None]
